FAERS Safety Report 20824814 (Version 1)
Quarter: 2022Q2

REPORT INFORMATION
  Report Type: Spontaneous
  Country: US (occurrence: None)
  Receive Date: 20220512
  Receipt Date: 20220512
  Transmission Date: 20220720
  Serious: Yes (Other)
  Sender: FDA-Public Use
  Company Number: None

PATIENT
  Age: 77 Year
  Sex: Male

DRUGS (2)
  1. NOURIANZ [Suspect]
     Active Substance: ISTRADEFYLLINE
     Indication: Parkinson^s disease
     Dosage: FREQUENCY : DAILY;?
     Route: 048
     Dates: start: 20211112
  2. NOURIANZ [Concomitant]
     Active Substance: ISTRADEFYLLINE
     Dates: start: 20211112

REACTIONS (1)
  - Dizziness [None]

NARRATIVE: CASE EVENT DATE: 20220412
